FAERS Safety Report 6966312-2 (Version None)
Quarter: 2010Q3

REPORT INFORMATION
  Report Type: 
  Country: None (occurrence: None)
  Receive Date: 20100903
  Receipt Date: 20100823
  Transmission Date: 20110219
  Serious: Yes (Hospitalization)
  Sender: FDA-Public Use
  Company Number: US-GENENTECH-306013

PATIENT
  Age: 2 Year
  Sex: Female

DRUGS (2)
  1. RITUXIMAB [Suspect]
     Indication: HAEMOLYTIC ANAEMIA
     Dosage: 375 MG/M2, SINGLE
     Route: 065
  2. IMMUNE GLOBULIN IV NOS [Suspect]
     Indication: ANTIBODY TEST ABNORMAL
     Dosage: UNK
     Route: 042

REACTIONS (5)
  - HYPOGAMMAGLOBULINAEMIA [None]
  - LYMPHOPENIA [None]
  - PERIORBITAL CELLULITIS [None]
  - PNEUMONIA [None]
  - SINUSITIS [None]
